FAERS Safety Report 18571418 (Version 1)
Quarter: 2020Q4

REPORT INFORMATION
  Report Type: Spontaneous
  Country: US (occurrence: US)
  Receive Date: 20201202
  Receipt Date: 20201202
  Transmission Date: 20210114
  Serious: No
  Sender: FDA-Public Use
  Company Number: US-TRIS PHARMA, INC.-20US009168

PATIENT

DRUGS (1)
  1. PROMETHAZINE HCL + CODEINE PHOSPHATE [Suspect]
     Active Substance: CODEINE PHOSPHATE\PROMETHAZINE HYDROCHLORIDE
     Indication: COUGH
     Dosage: 5 MILLILITER, Q 4-6 HR
     Route: 048
     Dates: start: 20201120, end: 20201120

REACTIONS (3)
  - Vomiting [Recovered/Resolved]
  - Product taste abnormal [Unknown]
  - Product odour abnormal [Unknown]

NARRATIVE: CASE EVENT DATE: 20201120
